FAERS Safety Report 10934983 (Version 1)
Quarter: 2015Q1

REPORT INFORMATION
  Report Type: Spontaneous
  Country: HK (occurrence: GB)
  Receive Date: 20150320
  Receipt Date: 20150320
  Transmission Date: 20150721
  Serious: Yes (Other)
  Sender: FDA-Public Use
  Company Number: HK-CIPLA LTD.-2015GB02449

PATIENT

DRUGS (5)
  1. FINASTERIDE. [Suspect]
     Active Substance: FINASTERIDE
     Indication: BENIGN PROSTATIC HYPERPLASIA
     Dosage: 5 MG ONCE A DAY
  2. SIMVASTATIN. [Suspect]
     Active Substance: SIMVASTATIN
  3. LISINOPRIL. [Suspect]
     Active Substance: LISINOPRIL
     Route: 048
  4. BECLOMETHASONE DIPROPIONATE HFA MDI [Suspect]
     Active Substance: BECLOMETHASONE DIPROPIONATE
     Indication: ASTHMA
  5. ASPIRIN. [Suspect]
     Active Substance: ASPIRIN

REACTIONS (1)
  - Floppy iris syndrome [Recovered/Resolved]
